FAERS Safety Report 8124143-4 (Version None)
Quarter: 2012Q1

REPORT INFORMATION
  Report Type: 
  Country: None (occurrence: None)
  Receive Date: 20120209
  Receipt Date: 20120201
  Transmission Date: 20120608
  Serious: Yes (Other)
  Sender: FDA-Public Use
  Company Number: US-BAYER-2011-032236

PATIENT
  Age: 19 Year
  Sex: Female
  Weight: 45.351 kg

DRUGS (7)
  1. DROSPIRENONE AND ETHINYL ESTRADIOL [Suspect]
     Indication: CONTRACEPTION
     Dosage: UNK UNK, QD
     Route: 048
     Dates: start: 20091201, end: 20110401
  2. CIPROFLOXACIN [Concomitant]
  3. MYALANTA [Concomitant]
     Dosage: AS NEEDED
  4. VICODIN [Concomitant]
  5. PRILOSEC [Concomitant]
  6. LORTAB [Concomitant]
  7. TUMS E-X [Concomitant]
     Dosage: AS NEEDED

REACTIONS (5)
  - CHOLECYSTITIS CHRONIC [None]
  - ABDOMINAL PAIN UPPER [None]
  - NAUSEA [None]
  - PYREXIA [None]
  - PAIN [None]
